FAERS Safety Report 17250362 (Version 1)
Quarter: 2020Q1

REPORT INFORMATION
  Report Type: Spontaneous
  Country: IE (occurrence: IE)
  Receive Date: 20200109
  Receipt Date: 20200109
  Transmission Date: 20200409
  Serious: Yes (Hospitalization)
  Sender: FDA-Public Use
  Company Number: IE-TEVA-2020-IE-1164663

PATIENT
  Age: 53 Year
  Sex: Female

DRUGS (5)
  1. OLANZAPINE (G) [Suspect]
     Active Substance: OLANZAPINE
     Indication: ANXIETY
     Dosage: 2.5 MILLIGRAM DAILY;
     Route: 048
     Dates: start: 20180926
  2. QUETIAPINE (G) [Suspect]
     Active Substance: QUETIAPINE
     Dosage: HALF TABLET TWICE A DAY FROM 25/JUL/2018
     Route: 048
     Dates: start: 20180725, end: 20180829
  3. LIDOCAINE HYDROCHLORIDE (G) [Concomitant]
     Indication: PAIN
     Route: 042
  4. QUETIAPINE (G) [Suspect]
     Active Substance: QUETIAPINE
     Indication: ANXIETY
     Dosage: INCREASED TO HALF TABLET FOUR TIMES DAILY
     Route: 048
     Dates: start: 20180829, end: 20180926
  5. KETAMINE (G) [Concomitant]
     Indication: PAIN
     Route: 042

REACTIONS (11)
  - Impaired quality of life [Not Recovered/Not Resolved]
  - Off label use [Not Recovered/Not Resolved]
  - Dystonia [Not Recovered/Not Resolved]
  - Vomiting [Not Recovered/Not Resolved]
  - Tongue movement disturbance [Not Recovered/Not Resolved]
  - Hypophagia [Not Recovered/Not Resolved]
  - Vomiting projectile [Not Recovered/Not Resolved]
  - Tongue haemorrhage [Not Recovered/Not Resolved]
  - Salivary hypersecretion [Not Recovered/Not Resolved]
  - Tooth disorder [Not Recovered/Not Resolved]
  - Tongue spasm [Not Recovered/Not Resolved]
